FAERS Safety Report 11039669 (Version 1)
Quarter: 2015Q2

REPORT INFORMATION
  Report Type: Spontaneous
  Country: US (occurrence: US)
  Receive Date: 20150416
  Receipt Date: 20150416
  Transmission Date: 20150821
  Serious: No
  Sender: FDA-Public Use
  Company Number: US-009507513-1503USA014219

PATIENT
  Age: 15 Year
  Sex: Female

DRUGS (1)
  1. EMEND [Suspect]
     Active Substance: APREPITANT
     Indication: PROPHYLAXIS OF NAUSEA AND VOMITING
     Dosage: 150 MG, FIRST DOSE
     Route: 042

REACTIONS (3)
  - Vomiting [Recovering/Resolving]
  - Chills [Recovering/Resolving]
  - Nausea [Recovering/Resolving]
